FAERS Safety Report 5680534-2 (Version None)
Quarter: 2008Q1

REPORT INFORMATION
  Report Type: 
  Country: None (occurrence: None)
  Receive Date: 20080326
  Receipt Date: 20080317
  Transmission Date: 20080703
  Serious: Yes (Hospitalization)
  Sender: FDA-Public Use
  Company Number: FR-MERCK-0803USA03405

PATIENT
  Age: 91 Year
  Sex: Male

DRUGS (2)
  1. MODURETIC 5-50 [Suspect]
     Indication: HYPERTENSION
     Route: 048
     Dates: end: 20080123
  2. AMLOR [Suspect]
     Indication: HYPERTENSION
     Route: 048
     Dates: end: 20080123

REACTIONS (5)
  - DIZZINESS [None]
  - MUSCULAR WEAKNESS [None]
  - ORTHOSTATIC HYPOTENSION [None]
  - SPEECH DISORDER [None]
  - TINNITUS [None]
